FAERS Safety Report 7813583-6 (Version None)
Quarter: 2011Q4

REPORT INFORMATION
  Report Type: 
  Country: None (occurrence: None)
  Receive Date: 20111014
  Receipt Date: 20111010
  Transmission Date: 20120403
  Serious: No
  Sender: FDA-Public Use
  Company Number: US-BIOGENIDEC-2011BI038716

PATIENT
  Sex: Female

DRUGS (3)
  1. TYSABRI [Suspect]
     Indication: MULTIPLE SCLEROSIS
     Route: 042
     Dates: start: 20110405
  2. TYSABRI [Suspect]
     Route: 042
     Dates: start: 20071115, end: 20100706
  3. AVONEX [Concomitant]
     Indication: MULTIPLE SCLEROSIS
     Route: 030
     Dates: start: 20030201

REACTIONS (4)
  - GAIT DISTURBANCE [None]
  - BURNING SENSATION [None]
  - MUSCULAR WEAKNESS [None]
  - EYE PAIN [None]
